FAERS Safety Report 9521163 (Version 3)
Quarter: 2014Q3

REPORT INFORMATION
  Report Type: Spontaneous
  Country: TW (occurrence: TW)
  Receive Date: 20130913
  Receipt Date: 20140712
  Transmission Date: 20150326
  Serious: Yes (Death, Life-Threatening, Hospitalization, Other)
  Sender: FDA-Public Use
  Company Number: TW-ALEXION PHARMACEUTICALS INC.-A201302174

PATIENT
  Age: 4 Year
  Sex: Male
  Weight: 12 kg

DRUGS (20)
  1. SOLIRIS [Suspect]
     Active Substance: ECULIZUMAB
     Dosage: 300 MG, SINGLE
     Route: 042
     Dates: start: 20131125
  2. SOLIRIS [Suspect]
     Active Substance: ECULIZUMAB
     Dosage: 300 MG, SINGLE
     Route: 042
     Dates: start: 20130621
  3. SOLIRIS [Suspect]
     Active Substance: ECULIZUMAB
     Dosage: 300 MG, SINGLE
     Route: 042
     Dates: start: 20130823
  4. SOLIRIS [Suspect]
     Active Substance: ECULIZUMAB
     Indication: HAEMOLYTIC URAEMIC SYNDROME
     Dosage: 300 MG, SINGLE
     Route: 042
     Dates: start: 20130511
  5. SOLIRIS [Suspect]
     Active Substance: ECULIZUMAB
     Dosage: 300 MG, SINGLE
     Route: 042
     Dates: start: 20131030
  6. SOLIRIS [Suspect]
     Active Substance: ECULIZUMAB
     Dosage: 300 MG, SINGLE
     Route: 042
     Dates: start: 20130603
  7. SOLIRIS [Suspect]
     Active Substance: ECULIZUMAB
     Dosage: 600 MG, SINGLE
     Route: 042
     Dates: start: 20130903
  8. SOLIRIS [Suspect]
     Active Substance: ECULIZUMAB
     Dosage: 300 MG, SINGLE
     Dates: start: 20131127
  9. SOLIRIS [Suspect]
     Active Substance: ECULIZUMAB
     Dosage: 300 MG, SINGLE
     Route: 042
     Dates: start: 20130809
  10. SOLIRIS [Suspect]
     Active Substance: ECULIZUMAB
     Dosage: 300 MG, SINGLE
     Route: 042
     Dates: start: 20130911
  11. SOLIRIS [Suspect]
     Active Substance: ECULIZUMAB
     Dosage: 300 MG, SINGLE
     Route: 042
     Dates: start: 20130520
  12. SOLIRIS [Suspect]
     Active Substance: ECULIZUMAB
     Dosage: 600 MG, SINGLE
     Route: 042
     Dates: start: 20130629
  13. SOLIRIS [Suspect]
     Active Substance: ECULIZUMAB
     Dosage: 300 MG, SINGLE
     Route: 042
     Dates: start: 20130712
  14. SOLIRIS [Suspect]
     Active Substance: ECULIZUMAB
     Dosage: 300 MG, SINGLE
     Route: 042
     Dates: start: 20130925
  15. SOLIRIS [Suspect]
     Active Substance: ECULIZUMAB
     Dosage: 300 MG, SINGLE
     Route: 042
     Dates: start: 20131009
  16. SOLIRIS [Suspect]
     Active Substance: ECULIZUMAB
     Dosage: 600 MG, SINGLE
     Route: 042
     Dates: start: 20131016
  17. SOLIRIS [Suspect]
     Active Substance: ECULIZUMAB
     Dosage: 300 MG, SINGLE
     Route: 042
     Dates: start: 20130614
  18. SOLIRIS [Suspect]
     Active Substance: ECULIZUMAB
     Dosage: 300 MG, SINGLE
     Route: 042
     Dates: start: 20130726
  19. SOLIRIS [Suspect]
     Active Substance: ECULIZUMAB
     Dosage: 300 MG, SINGLE
     Route: 042
     Dates: start: 20131113
  20. SOLIRIS [Suspect]
     Active Substance: ECULIZUMAB
     Dosage: 300 MG, SINGLE
     Route: 042
     Dates: start: 20130516

REACTIONS (19)
  - Acinetobacter bacteraemia [Fatal]
  - Multi-organ failure [Fatal]
  - Disseminated intravascular coagulation [Fatal]
  - Haemoglobin decreased [Recovering/Resolving]
  - Resuscitation [Unknown]
  - Peritonitis bacterial [Recovering/Resolving]
  - Staphylococcal infection [Fatal]
  - Hypotension [Fatal]
  - Renal failure acute [Fatal]
  - Intestinal perforation [Recovered/Resolved]
  - Blood lactate dehydrogenase increased [Unknown]
  - Sepsis [Fatal]
  - Pulmonary haemorrhage [Fatal]
  - Platelet count decreased [Recovering/Resolving]
  - Weight decreased [Unknown]
  - Inappropriate schedule of drug administration [Unknown]
  - Bacteraemia [Fatal]
  - Cardiac failure [Fatal]
  - Intestinal ischaemia [Recovered/Resolved]

NARRATIVE: CASE EVENT DATE: 20130828
